FAERS Safety Report 7079369-8 (Version None)
Quarter: 2010Q4

REPORT INFORMATION
  Report Type: 
  Country: None (occurrence: None)
  Receive Date: 20101022
  Receipt Date: 20101020
  Transmission Date: 20110411
  Serious: Yes (Hospitalization)
  Sender: FDA-Public Use
  Company Number: 2010SP054601

PATIENT
  Age: 59 Year
  Sex: Female
  Weight: 35 kg

DRUGS (9)
  1. VIRAFERONPEG [Suspect]
     Indication: HEPATITIS C
     Dosage: 0.35 ML
     Dates: start: 20091202, end: 20100328
  2. RIBAVIRIN [Suspect]
     Indication: HEPATITIS C
     Dates: start: 20091202, end: 20100328
  3. GLIMEPIRIDE [Concomitant]
  4. CORGARD [Concomitant]
  5. ATARAX [Concomitant]
  6. DAFLON [Concomitant]
  7. LACTULOSE [Concomitant]
  8. PAXELADINE [Concomitant]
  9. NEORECORMON [Concomitant]

REACTIONS (5)
  - ANAEMIA [None]
  - ECZEMA [None]
  - PULMONARY HAEMORRHAGE [None]
  - RASH GENERALISED [None]
  - STAPHYLOCOCCUS TEST POSITIVE [None]
